FAERS Safety Report 18438473 (Version 1)
Quarter: 2020Q4

REPORT INFORMATION
  Report Type: Spontaneous
  Country: GB (occurrence: GB)
  Receive Date: 20201029
  Receipt Date: 20201029
  Transmission Date: 20210114
  Serious: Yes (Other)
  Sender: FDA-Public Use
  Company Number: GB-SUN PHARMACEUTICAL INDUSTRIES LTD-2020R1-265491

PATIENT
  Age: 45 Year
  Sex: Male

DRUGS (3)
  1. METHYLPREDNISOLONE. [Suspect]
     Active Substance: METHYLPREDNISOLONE
     Indication: HAEMOSTASIS
     Route: 042
  2. TRANEXAMIC ACID. [Suspect]
     Active Substance: TRANEXAMIC ACID
     Indication: HAEMOSTASIS
     Dosage: UNK
     Route: 065
  3. DESMOPRESSIN [Suspect]
     Active Substance: DESMOPRESSIN
     Indication: HAEMOSTASIS
     Dosage: UNK
     Route: 065

REACTIONS (2)
  - Post transplant lymphoproliferative disorder [Unknown]
  - Drug ineffective [Unknown]
